FAERS Safety Report 4927889-1 (Version None)
Quarter: 2006Q1

REPORT INFORMATION
  Report Type: 
  Country: None (occurrence: None)
  Receive Date: 20060228
  Receipt Date: 20060227
  Transmission Date: 20060701
  Serious: Yes (Life-Threatening)
  Sender: FDA-Public Use
  Company Number: DE-GLAXOSMITHKLINE-D0048846A

PATIENT
  Age: 81 Year
  Sex: Male
  Weight: 80 kg

DRUGS (3)
  1. REQUIP [Suspect]
     Indication: PARKINSON'S DISEASE
     Dosage: 1MG TWICE PER DAY
     Route: 048
  2. FENTANYL CITRATE [Suspect]
     Indication: BACK PAIN
     Dosage: 25UGH UNKNOWN
     Route: 062
     Dates: start: 20060125, end: 20060127
  3. BENSERAZIDE + LEVODOPA [Suspect]
     Indication: PARKINSON'S DISEASE
     Dosage: 4.5TAB PER DAY
     Route: 048

REACTIONS (6)
  - APHASIA [None]
  - BEDRIDDEN [None]
  - FEELING ABNORMAL [None]
  - OBSTRUCTIVE AIRWAYS DISORDER [None]
  - PARALYSIS [None]
  - VOMITING [None]
